FAERS Safety Report 24642959 (Version 6)
Quarter: 2024Q4

REPORT INFORMATION
  Report Type: Spontaneous
  Country: FR (occurrence: FR)
  Receive Date: 20241120
  Receipt Date: 20241216
  Transmission Date: 20250115
  Serious: Yes (Hospitalization, Other)
  Sender: MYLAN
  Company Number: FR-STADA-01311152

PATIENT
  Age: 75 Year
  Sex: Male

DRUGS (35)
  1. PREDNISONE [Suspect]
     Active Substance: PREDNISONE
     Indication: Richter^s syndrome
     Dosage: 100 MILLIGRAM, QD (100 MG/DAY, C1D1, D1-D5, R-CHOP ON 3-WEEK CYCLE (21 DAYS)
     Route: 048
     Dates: start: 20241001
  2. PREDNISONE [Suspect]
     Active Substance: PREDNISONE
     Indication: Diffuse large B-cell lymphoma stage IV
     Dosage: UNSPECIFIED DOSE, START DATE: OCT-2024
     Route: 065
     Dates: start: 202410
  3. DOXORUBICIN [Suspect]
     Active Substance: DOXORUBICIN
     Indication: Richter^s syndrome
     Dosage: 50 MILLIGRAM/SQ. METER, Q3W (50 MG/M2, C1D1, R-CHOP ON 3-WEEK CYCLE (21 DAYS) (DAY 1))
     Route: 042
     Dates: start: 20241001, end: 20241001
  4. DOXORUBICIN [Suspect]
     Active Substance: DOXORUBICIN
     Indication: Diffuse large B-cell lymphoma stage IV
     Dosage: 50 MILLIGRAM/SQ. METER C2D1, R-CHOP ON 3-WEEK CYCLE (21 DAYS) (DAY 1),
     Route: 042
     Dates: start: 20241023, end: 20241023
  5. VINCRISTINE [Suspect]
     Active Substance: VINCRISTINE
     Indication: Richter^s syndrome
     Dosage: 1.4 MG/SQ. METER,Q3W (RECOMMENDED CAP OF 2 MG), C1D1, R-CHOP ON 3-WEEK CYCLE (21 DAYS) (DAY 1))
     Route: 042
     Dates: start: 20241001
  6. VINCRISTINE [Suspect]
     Active Substance: VINCRISTINE
     Indication: Diffuse large B-cell lymphoma stage IV
     Dosage: 1.4 MG/SQ. METER,Q3W (RECOMMENDED CAP OF 2 MG), C1D1, R-CHOP ON 3-WEEK CY)
     Route: 042
     Dates: start: 20241023, end: 20241023
  7. CYCLOPHOSPHAMIDE [Suspect]
     Active Substance: CYCLOPHOSPHAMIDE
     Indication: Richter^s syndrome
     Dosage: 750 MILLIGRAM/SQ. METER, Q3W (750 MG/M2, C1D1, R-CHOP ON 3-WEEK CYCLE (21 DAYS) (DAY 1)
     Route: 042
     Dates: start: 20241001, end: 20241001
  8. CYCLOPHOSPHAMIDE [Suspect]
     Active Substance: CYCLOPHOSPHAMIDE
     Indication: Diffuse large B-cell lymphoma stage IV
     Dosage: 750 MILLIGRAM/SQ. METER, C2D1, R-CHOP ON 3-WEEK CYCLE (21 DAYS) (DAY 1),
     Route: 042
     Dates: start: 20241023, end: 20241023
  9. MABTHERA [Suspect]
     Active Substance: RITUXIMAB
     Indication: Richter^s syndrome
     Dosage: 375 MILLIGRAM/SQ. METER, Q3W (375 MG/M2, C1D1, R-CHOP ON 3-WEEK CYCLE (21 DAYS) (DAY 1))
     Route: 042
     Dates: start: 20241001, end: 20241001
  10. MABTHERA [Suspect]
     Active Substance: RITUXIMAB
     Indication: Diffuse large B-cell lymphoma stage IV
     Dosage: 375 MILLIGRAM/SQ. METER, C2D1, R-CHOP ON 3-WEEK CYCLE (21 DAYS) (DAY 1)
     Route: 042
     Dates: start: 20241023, end: 20241023
  11. EPCORITAMAB [Suspect]
     Active Substance: EPCORITAMAB
     Indication: Richter^s syndrome
     Dosage: 0.16 MILLIGRAM, Q3W (PRIMING DOSE ON C1D1 (DUOBODY-CD3XCD20))
     Route: 058
     Dates: start: 20241001, end: 20241001
  12. EPCORITAMAB [Suspect]
     Active Substance: EPCORITAMAB
     Indication: Diffuse large B-cell lymphoma stage IV
     Dosage: 0.8 MILLIGRAM, Q3W (INTERMEDIATE DOSE ON C1D8 (DUOBODY-CD3XCD20))
     Route: 058
     Dates: start: 20241008, end: 20241008
  13. EPCORITAMAB [Suspect]
     Active Substance: EPCORITAMAB
     Dosage: 48 MILLIGRAM (AT CYCLE 1 DAY 15 (C1D15))
     Route: 058
     Dates: start: 20241016
  14. EPCORITAMAB [Suspect]
     Active Substance: EPCORITAMAB
     Dosage: 48 MILLIGRAM, C2D15
     Route: 058
     Dates: start: 20241107, end: 20241107
  15. ACETAMINOPHEN [Concomitant]
     Active Substance: ACETAMINOPHEN
     Indication: Premedication
     Dosage: 1 GRAM (1 G, START TIME: AT 10:25 HRS)
     Route: 042
     Dates: start: 20241001
  16. ACETAMINOPHEN [Concomitant]
     Active Substance: ACETAMINOPHEN
     Dosage: 1 GRAM (1 G, START TIME: AT 04:40 HRS)
     Route: 042
     Dates: start: 20241001
  17. ACETAMINOPHEN [Concomitant]
     Active Substance: ACETAMINOPHEN
     Dosage: 1 GRAM
     Route: 042
     Dates: start: 20241016, end: 20241016
  18. ACETAMINOPHEN [Concomitant]
     Active Substance: ACETAMINOPHEN
     Dosage: 1 GRAM
     Route: 042
     Dates: start: 20241023, end: 20241023
  19. POLARAMINE [Concomitant]
     Active Substance: DEXCHLORPHENIRAMINE MALEATE
     Indication: Premedication
     Dosage: 5 MILLIGRAM
     Route: 042
     Dates: start: 20241001, end: 20241001
  20. POLARAMINE [Concomitant]
     Active Substance: DEXCHLORPHENIRAMINE MALEATE
     Dosage: 5 MILLIGRAM
     Route: 042
     Dates: start: 20241016, end: 20241016
  21. POLARAMINE [Concomitant]
     Active Substance: DEXCHLORPHENIRAMINE MALEATE
     Dosage: 5 MILLIGRAM
     Route: 042
     Dates: start: 20241016, end: 20241016
  22. FOSFOMYCIN [Concomitant]
     Active Substance: FOSFOMYCIN
     Dosage: UNK
     Route: 065
     Dates: start: 20241017, end: 20241017
  23. SMECTA [Concomitant]
     Active Substance: MONTMORILLONITE
     Dosage: UNK
     Route: 065
     Dates: start: 20241009, end: 20241009
  24. POTASSIUM CHLORIDE [Concomitant]
     Active Substance: POTASSIUM CHLORIDE
     Dosage: UNK
     Route: 065
     Dates: start: 20241014, end: 20241016
  25. OXYGEN [Concomitant]
     Active Substance: OXYGEN
     Dosage: UNK
     Route: 065
     Dates: start: 20241016, end: 20241016
  26. TOCILIZUMAB [Concomitant]
     Active Substance: TOCILIZUMAB
     Dosage: UNK
     Route: 065
     Dates: start: 20241017, end: 20241017
  27. MEROPENEM [Concomitant]
     Active Substance: MEROPENEM
     Dosage: UNK
     Route: 065
     Dates: start: 20241017, end: 20241017
  28. ELIQUIS [Concomitant]
     Active Substance: APIXABAN
     Dosage: UNK, ONGOIN
     Route: 065
     Dates: start: 202102
  29. BISOPROLOL [Concomitant]
     Active Substance: BISOPROLOL
     Dosage: UNK, ONGOING
     Route: 065
     Dates: start: 202102
  30. SILODOSIN [Concomitant]
     Active Substance: SILODOSIN
     Dosage: UNK
     Route: 065
  31. ALLOPURINOL [Concomitant]
     Active Substance: ALLOPURINOL
     Dosage: UNK
     Route: 065
     Dates: start: 20240926
  32. VALACYCLOVIR HYDROCHLORIDE [Concomitant]
     Active Substance: VALACYCLOVIR HYDROCHLORIDE
     Dosage: UNK
     Route: 065
     Dates: start: 20240101
  33. BACTRIM [Concomitant]
     Active Substance: SULFAMETHOXAZOLE\TRIMETHOPRIM
     Dosage: UNK
     Route: 065
     Dates: start: 20241001
  34. OMEPRAZOLE [Concomitant]
     Active Substance: OMEPRAZOLE
     Dosage: UNK, ONGING
     Route: 065
     Dates: start: 1990
  35. TAHOR [Concomitant]
     Active Substance: ATORVASTATIN CALCIUM
     Dosage: UNK
     Route: 065

REACTIONS (5)
  - Cytokine release syndrome [Not Recovered/Not Resolved]
  - Pyrexia [Unknown]
  - Febrile neutropenia [Not Recovered/Not Resolved]
  - Anaemia [Recovered/Resolved]
  - Off label use [Unknown]

NARRATIVE: CASE EVENT DATE: 20241001
